FAERS Safety Report 7107385-6 (Version None)
Quarter: 2010Q4

REPORT INFORMATION
  Report Type: 
  Country: None (occurrence: None)
  Receive Date: 20101112
  Receipt Date: 20101112
  Transmission Date: 20110411
  Serious: Yes (Hospitalization)
  Sender: FDA-Public Use
  Company Number: None

PATIENT
  Sex: Male
  Weight: 86.18 kg

DRUGS (10)
  1. FLUOROURACIL [Suspect]
     Dosage: 1604 MG
     Dates: end: 20101020
  2. ERBITUX [Suspect]
     Dosage: 2001 MG
     Dates: end: 20101027
  3. LEUCOVORIN CALCIUM [Suspect]
     Dosage: 1604 MG
     Dates: end: 20101020
  4. ELOXATIN [Suspect]
     Dosage: 340 MG
     Dates: end: 20101020
  5. GLIPIZIDE [Concomitant]
  6. METFORMIN HCL [Concomitant]
  7. METOPROLOL TARTRATE [Concomitant]
  8. SIMVASTATIN [Concomitant]
  9. TERAZOSIN HCL [Concomitant]
  10. ... [Concomitant]

REACTIONS (1)
  - BACTERIAL SEPSIS [None]
